FAERS Safety Report 12681213 (Version 1)
Quarter: 2016Q3

REPORT INFORMATION
  Report Type: Spontaneous
  Country: TW (occurrence: TW)
  Receive Date: 20160824
  Receipt Date: 20160824
  Transmission Date: 20161109
  Serious: Yes (Other)
  Sender: FDA-Public Use
  Company Number: TW-NORTH CREEK PHARMACEUTICALS LLC-2016VTS00055

PATIENT
  Age: 47 Year
  Sex: Male
  Weight: 51 kg

DRUGS (5)
  1. THIAMYLAL [Concomitant]
     Active Substance: THIAMYLAL
     Dosage: 375 MG, ONCE
     Route: 065
  2. FENTANYL. [Concomitant]
     Active Substance: FENTANYL
     Dosage: 100 ?G, ONCE
     Route: 042
  3. CISATRACURIUM. [Concomitant]
     Active Substance: CISATRACURIUM
     Dosage: 16 MG, ONCE
     Route: 065
  4. TRANEXAMIC ACID. [Suspect]
     Active Substance: TRANEXAMIC ACID
     Indication: HAEMOSTASIS
     Dosage: 500 MG BOLUS, UNK
     Route: 065
  5. SEVOFLURANE. [Concomitant]
     Active Substance: SEVOFLURANE

REACTIONS (4)
  - Thrombosis [Recovered/Resolved]
  - Obstructive airways disorder [Recovered/Resolved]
  - Oxygen saturation decreased [Recovered/Resolved]
  - Bradycardia [Recovered/Resolved]
